FAERS Safety Report 8291204-9 (Version None)
Quarter: 2012Q2

REPORT INFORMATION
  Report Type: 
  Country: None (occurrence: None)
  Receive Date: 20120417
  Receipt Date: 20120410
  Transmission Date: 20120825
  Serious: Yes (Other)
  Sender: FDA-Public Use
  Company Number: US-FRI-1000029699

PATIENT
  Sex: Female

DRUGS (6)
  1. LATUDA [Suspect]
     Route: 048
  2. LEXAPRO [Suspect]
     Route: 048
  3. ASPIRIN [Suspect]
  4. METFORMIN HCL [Suspect]
  5. LOVENOX [Suspect]
  6. FOLIC ACID [Suspect]

REACTIONS (2)
  - ABORTION SPONTANEOUS [None]
  - MATERNAL EXPOSURE DURING PREGNANCY [None]
